FAERS Safety Report 6088128-4 (Version None)
Quarter: 2009Q1

REPORT INFORMATION
  Report Type: 
  Country: None (occurrence: None)
  Receive Date: 20090224
  Receipt Date: 20090216
  Transmission Date: 20090719
  Serious: Yes (Life-Threatening)
  Sender: FDA-Public Use
  Company Number: ES-RANBAXY-2009RR-21837

PATIENT
  Age: 20 Year
  Sex: Female

DRUGS (1)
  1. ACETAMINOPHEN [Suspect]
     Dosage: UNK

REACTIONS (1)
  - ANAPHYLACTIC REACTION [None]
